FAERS Safety Report 12453524 (Version 2)
Quarter: 2016Q3

REPORT INFORMATION
  Report Type: Spontaneous
  Country: US (occurrence: US)
  Receive Date: 20160609
  Receipt Date: 20160720
  Transmission Date: 20161109
  Serious: Yes (Hospitalization, Other)
  Sender: FDA-Public Use
  Company Number: US-DSJP-DSU-2015-134190

PATIENT
  Age: 49 Year
  Sex: Female
  Weight: 70.75 kg

DRUGS (8)
  1. BENICAR HCT [Suspect]
     Active Substance: HYDROCHLOROTHIAZIDE\OLMESARTAN MEDOXOMIL
     Dosage: 40/12.5MG, UNK
     Route: 048
     Dates: start: 20100330, end: 20131213
  2. BENICAR HCT [Suspect]
     Active Substance: HYDROCHLOROTHIAZIDE\OLMESARTAN MEDOXOMIL
     Dosage: 40/12.5MG, UNK
     Route: 048
     Dates: start: 20140127, end: 201407
  3. ADVIL [Concomitant]
     Active Substance: IBUPROFEN
     Indication: PAIN
  4. BENICAR HCT [Suspect]
     Active Substance: HYDROCHLOROTHIAZIDE\OLMESARTAN MEDOXOMIL
     Indication: HYPERTENSION
     Dosage: 20/12.5MG, UNK
     Route: 048
     Dates: start: 20080126, end: 20080225
  5. BENICAR HCT [Suspect]
     Active Substance: HYDROCHLOROTHIAZIDE\OLMESARTAN MEDOXOMIL
     Dosage: 40/12.5MG, UNK
     Route: 048
     Dates: start: 20080518, end: 20090920
  6. ADVIL [Concomitant]
     Active Substance: IBUPROFEN
     Indication: HEADACHE
     Dosage: UNK
     Dates: start: 2007
  7. BENICAR [Suspect]
     Active Substance: OLMESARTAN MEDOXOMIL
     Indication: HYPERTENSION
     Dosage: 40 MG, UNK
     Route: 048
     Dates: start: 20140122, end: 20140126
  8. BENAZEPRIL HYDROCHLORIDE AND HYDROCHLOROTHIAZIDE [Concomitant]
     Active Substance: BENAZEPRIL HYDROCHLORIDE\HYDROCHLOROTHIAZIDE
     Indication: HYPERTENSION
     Dosage: UNK
     Dates: start: 200909, end: 201003

REACTIONS (9)
  - Acute kidney injury [Recovered/Resolved]
  - Jaundice [Recovered/Resolved]
  - Lethargy [Recovered/Resolved]
  - Malabsorption [Recovered/Resolved]
  - Haematuria [Recovered/Resolved]
  - Decreased appetite [Recovered/Resolved]
  - Hypotension [Unknown]
  - Duodenitis [Recovered/Resolved]
  - Hepatic function abnormal [Recovering/Resolving]

NARRATIVE: CASE EVENT DATE: 201405
